FAERS Safety Report 12618854 (Version 2)
Quarter: 2016Q3

REPORT INFORMATION
  Report Type: Spontaneous
  Country: US (occurrence: US)
  Receive Date: 20160803
  Receipt Date: 20160818
  Transmission Date: 20161109
  Serious: No
  Sender: FDA-Public Use
  Company Number: US-MERZ NORTH AMERICA, INC.-16MRZ-00444

PATIENT
  Sex: Female

DRUGS (2)
  1. XEOMIN [Suspect]
     Active Substance: INCOBOTULINUMTOXINA
     Indication: SKIN WRINKLING
  2. XEOMIN [Suspect]
     Active Substance: INCOBOTULINUMTOXINA
     Indication: FACE LIFT
     Dosage: 18 UNITS IN THE FOREHEAD; 9 UNITS IN BOTH SIDES OF CROW^S FEET
     Route: 065
     Dates: start: 20160628, end: 20160628

REACTIONS (1)
  - Drug ineffective [Unknown]
